FAERS Safety Report 6770614-2 (Version None)
Quarter: 2010Q2

REPORT INFORMATION
  Report Type: 
  Country: None (occurrence: None)
  Receive Date: 20100615
  Receipt Date: 20100603
  Transmission Date: 20101027
  Serious: Yes (Other)
  Sender: FDA-Public Use
  Company Number: TW-ELI_LILLY_AND_COMPANY-TW201006001467

PATIENT

DRUGS (3)
  1. ALIMTA [Suspect]
     Dosage: 500 MG/M2, UNK
  2. VITAMIN B-12 [Concomitant]
     Indication: PREMEDICATION
  3. FOLIC ACID [Concomitant]
     Indication: PREMEDICATION

REACTIONS (1)
  - HAEMATOTOXICITY [None]
